FAERS Safety Report 15514898 (Version 1)
Quarter: 2018Q4

REPORT INFORMATION
  Report Type: Spontaneous
  Country: FR (occurrence: FR)
  Receive Date: 20181017
  Receipt Date: 20181017
  Transmission Date: 20190205
  Serious: Yes (Hospitalization)
  Sender: FDA-Public Use
  Company Number: FR-TEVA-2018-FR-964824

PATIENT
  Age: 50 Year
  Sex: Male
  Weight: 61 kg

DRUGS (3)
  1. IBUPROFENE [Suspect]
     Active Substance: IBUPROFEN
     Indication: NASOPHARYNGITIS
     Dosage: 400 MILLIGRAM DAILY;
     Route: 048
     Dates: start: 20171213, end: 20171214
  2. ROXITHROMYCINE [Suspect]
     Active Substance: ROXITHROMYCIN
     Indication: NASOPHARYNGITIS
     Dosage: 150 MILLIGRAM DAILY;
     Route: 048
     Dates: start: 20171213, end: 20171214
  3. MALARONE, COMPRIM? PELLICUL? [Suspect]
     Active Substance: ATOVAQUONE\PROGUANIL HYDROCHLORIDE
     Indication: MALARIA PROPHYLAXIS
     Dosage: 250/100 MG
     Route: 048
     Dates: start: 20171202, end: 20171214

REACTIONS (3)
  - Erythema multiforme [Recovered/Resolved]
  - Oedema peripheral [Recovered/Resolved]
  - Jaundice [Recovered/Resolved]

NARRATIVE: CASE EVENT DATE: 20171214
